FAERS Safety Report 22935991 (Version 7)
Quarter: 2023Q4

REPORT INFORMATION
  Report Type: Report from Study
  Country: JP (occurrence: JP)
  Receive Date: 20230912
  Receipt Date: 20231201
  Transmission Date: 20240110
  Serious: No
  Sender: FDA-Public Use
  Company Number: JP-SAREPTA THERAPEUTICS INC.-SRP2023-003755

PATIENT

DRUGS (17)
  1. INVESTIGATIONAL PRODUCT [Suspect]
     Active Substance: INVESTIGATIONAL PRODUCT
     Indication: Duchenne muscular dystrophy
     Dosage: 1.33 X10E14 VG/KG, SINGLE
     Route: 042
     Dates: start: 20230823, end: 20230823
  2. PLACEBO [Suspect]
     Active Substance: UNSPECIFIED INGREDIENT
     Indication: Duchenne muscular dystrophy
     Dosage: 1.33 X10E14 VG/KG, SINGLE
     Route: 042
     Dates: start: 20230823, end: 20230823
  3. DELANDISTROGENE MOXEPARVOVEC [Suspect]
     Active Substance: DELANDISTROGENE MOXEPARVOVEC
     Indication: Duchenne muscular dystrophy
     Dosage: 1.33 X10E14 VG/KG, SINGLE
     Route: 042
     Dates: start: 20230823, end: 20230823
  4. INVESTIGATIONAL PRODUCT [Suspect]
     Active Substance: INVESTIGATIONAL PRODUCT
     Dosage: 1.33 X10E14 VG/KG, SINGLE
     Route: 042
     Dates: start: 20220817, end: 20220817
  5. PLACEBO [Suspect]
     Active Substance: UNSPECIFIED INGREDIENT
     Dosage: 1.33 X10E14 VG/KG, SINGLE
     Route: 042
     Dates: start: 20220817, end: 20220817
  6. DELANDISTROGENE MOXEPARVOVEC [Suspect]
     Active Substance: DELANDISTROGENE MOXEPARVOVEC
     Dosage: 1.33 X10E14 VG/KG, SINGLE
     Route: 042
     Dates: start: 20220817, end: 20220817
  7. PREDNISOLONE [Concomitant]
     Active Substance: PREDNISOLONE
     Indication: Duchenne muscular dystrophy
     Dosage: 12 MILLIGRAM, QD
     Route: 048
     Dates: start: 20200220, end: 20230824
  8. PREDNISOLONE [Concomitant]
     Active Substance: PREDNISOLONE
     Indication: Immunosuppression
     Dosage: 21 MILLIGRAM, QD
     Route: 048
     Dates: start: 20220816, end: 20220914
  9. PREDNISOLONE [Concomitant]
     Active Substance: PREDNISOLONE
     Indication: Immunosuppression
     Dosage: 22 MILLIGRAM, QD
     Route: 048
     Dates: start: 20220915, end: 20221012
  10. PREDNISOLONE [Concomitant]
     Active Substance: PREDNISOLONE
     Dosage: 23 MILLIGRAM, QD
     Route: 048
     Dates: start: 20221013, end: 20221018
  11. PREDNISOLONE [Concomitant]
     Active Substance: PREDNISOLONE
     Dosage: 12 MILLIGRAM, QD
     Route: 048
     Dates: start: 20221019, end: 20221025
  12. PREDNISOLONE [Concomitant]
     Active Substance: PREDNISOLONE
     Dosage: 6 MILLIGRAM, QD
     Route: 048
     Dates: start: 20221026, end: 20221101
  13. PREDNISOLONE [Concomitant]
     Active Substance: PREDNISOLONE
     Dosage: 23 MILLIGRAM, QD
     Route: 048
     Dates: start: 20230822, end: 20230824
  14. PREDNISOLONE [Concomitant]
     Active Substance: PREDNISOLONE
     Dosage: 25 MILLIGRAM, QD
     Route: 042
     Dates: start: 20230825, end: 20230827
  15. PREDNISOLONE [Concomitant]
     Active Substance: PREDNISOLONE
     Dosage: 23 MILLIGRAM, QD
     Route: 048
     Dates: start: 20230828
  16. PREDNISOLONE [Concomitant]
     Active Substance: PREDNISOLONE
     Dosage: 12 MILLIGRAM, QD
     Route: 042
     Dates: start: 20230825, end: 20230828
  17. PREDNISOLONE [Concomitant]
     Active Substance: PREDNISOLONE
     Dosage: 12 MILLIGRAM, QD
     Route: 048
     Dates: start: 20230829

REACTIONS (1)
  - Glutamate dehydrogenase increased [Recovered/Resolved]

NARRATIVE: CASE EVENT DATE: 20230829
